FAERS Safety Report 9630109 (Version 2)
Quarter: 2013Q4

REPORT INFORMATION
  Report Type: Spontaneous
  Country: CA (occurrence: CA)
  Receive Date: 20131017
  Receipt Date: 20131017
  Transmission Date: 20140711
  Serious: Yes (Hospitalization, Other)
  Sender: FDA-Public Use
  Company Number: CA-ABBVIE-13P-028-1042355-00

PATIENT
  Age: 83 Year
  Sex: Male
  Weight: 63 kg

DRUGS (14)
  1. NORVIR [Suspect]
     Indication: HIV INFECTION
     Route: 048
     Dates: start: 19850101, end: 20120210
  2. NORVIR [Interacting]
     Indication: ANTIRETROVIRAL THERAPY
  3. ADVAIR [Interacting]
     Indication: CHRONIC OBSTRUCTIVE PULMONARY DISEASE
     Dosage: TOTAL DAILY DOSE: 250MCG/100 MCG; UNIT DOSE: 125MCG/50MCG
     Route: 055
     Dates: end: 20111222
  4. ADVAIR [Interacting]
     Dosage: TOTAL DAILY DOSE: 1000MCG/200MCG; UNIT DOSE: 2 INH 250MCG/50MCG
     Route: 055
     Dates: start: 20111222, end: 20120127
  5. BETADERM [Concomitant]
     Indication: PRODUCT USED FOR UNKNOWN INDICATION
     Dosage: BID PRN
     Route: 061
  6. CLOTRIMADERM [Concomitant]
     Indication: PRODUCT USED FOR UNKNOWN INDICATION
     Route: 061
  7. COVERSYL [Concomitant]
     Indication: PRODUCT USED FOR UNKNOWN INDICATION
     Route: 048
  8. PARIET [Concomitant]
     Indication: PRODUCT USED FOR UNKNOWN INDICATION
     Route: 048
  9. VENTOLIN [Concomitant]
     Indication: PRODUCT USED FOR UNKNOWN INDICATION
     Dosage: 2 INH QID PRN
     Route: 055
  10. ISENTRESS [Concomitant]
     Indication: ANTIRETROVIRAL THERAPY
     Route: 048
  11. INTELENCE [Concomitant]
     Indication: ANTIRETROVIRAL THERAPY
     Route: 048
  12. PREZISTA [Concomitant]
     Indication: ANTIRETROVIRAL THERAPY
     Route: 048
  13. HYDROCHLOROTHIAZIDE [Concomitant]
     Indication: PRODUCT USED FOR UNKNOWN INDICATION
     Route: 048
  14. SPIRIVA [Concomitant]
     Indication: PRODUCT USED FOR UNKNOWN INDICATION
     Route: 055

REACTIONS (8)
  - Cushing^s syndrome [Unknown]
  - Drug interaction [Unknown]
  - Blood triglycerides increased [Unknown]
  - Face oedema [Unknown]
  - Hyperglycaemia [Unknown]
  - Skin depigmentation [Unknown]
  - Weight increased [Unknown]
  - Lipohypertrophy [Unknown]
